FAERS Safety Report 4697191-4 (Version None)
Quarter: 2005Q2

REPORT INFORMATION
  Report Type: 
  Country: None (occurrence: None)
  Receive Date: 20050621
  Receipt Date: 20050621
  Transmission Date: 20051028
  Serious: Yes (Other)
  Sender: FDA-Public Use
  Company Number: None

PATIENT
  Sex: Male
  Weight: 114.5 kg

DRUGS (7)
  1. CAMPATH [Suspect]
     Indication: ACUTE LYMPHOCYTIC LEUKAEMIA
     Dosage: DURING COURSE IV
     Route: 042
     Dates: start: 20040214
  2. MERCAPTOPURINE [Suspect]
     Dosage: 60 MG/M2/DAY PO QD
     Route: 048
  3. VINCRISTINE [Suspect]
     Dosage: 2 MG IV ON DAY 1 EVERY 4 WEEKS
     Route: 042
  4. DEXAMETHASONE [Suspect]
     Dosage: 6 MG/M2/DAY PO ON DAYS 1-5 EVERY 4 WEEKS
     Route: 048
  5. METHOTREXATE [Suspect]
     Dosage: 20 MG/M2 PO ON DAY 1 Q WK X 4 WEEKS
     Route: 048
  6. COTRIMOXAZOLE DS [Suspect]
     Dosage: ONE TABLET PO BID 3 DAYS/WEEK UNTIL THE COMPLETION OF ALL CHEMOTHERAPY
     Route: 048
  7. ACYCLOVIR [Suspect]
     Dosage: (CONTINUING FROM CYCLE IV) 800 MG PO QID UNTIL 6 MONTHS POST-CHEMO OR RECOVERY PERIPHERAL CD4 AND CD
     Route: 048

REACTIONS (2)
  - PNEUMONIA [None]
  - ROAD TRAFFIC ACCIDENT [None]
